FAERS Safety Report 10559451 (Version 1)
Quarter: 2014Q4

REPORT INFORMATION
  Report Type: Spontaneous
  Country: GB (occurrence: None)
  Receive Date: 20141030
  Receipt Date: 20141030
  Transmission Date: 20150529
  Serious: Yes (Death)
  Sender: FDA-Public Use
  Company Number: VAL_03493_2014

PATIENT
  Age: 41 Year
  Sex: Male
  Weight: 86 kg

DRUGS (1)
  1. CARBAMAZEPINE (CARBAMAZEPINE) [Suspect]
     Active Substance: CARBAMAZEPINE
     Indication: EPILEPSY
     Dosage: (DF)

REACTIONS (9)
  - Lower respiratory tract infection [None]
  - Tachyarrhythmia [None]
  - Stevens-Johnson syndrome [None]
  - Tachycardia [None]
  - Cardiogenic shock [None]
  - Hypersensitivity [None]
  - Cardiac failure [None]
  - Myocardial necrosis [None]
  - Cardiac arrest [None]
